FAERS Safety Report 25804520 (Version 6)
Quarter: 2025Q4

REPORT INFORMATION
  Report Type: Spontaneous
  Country: US (occurrence: US)
  Receive Date: 20250915
  Receipt Date: 20251020
  Transmission Date: 20260119
  Serious: Yes (Other)
  Sender: PFIZER
  Company Number: US-PFIZER INC-PV202500110489

PATIENT
  Age: 72 Year
  Sex: Female
  Weight: 69.841 kg

DRUGS (10)
  1. ESTRING [Suspect]
     Active Substance: ESTRADIOL
     Indication: Vaginal disorder
     Dosage: 7.5 UG, EVERY 3 MONTHS
     Route: 067
     Dates: start: 202509, end: 202509
  2. ESTRING [Suspect]
     Active Substance: ESTRADIOL
     Indication: Infection prophylaxis
  3. GABAPENTIN [Concomitant]
     Active Substance: GABAPENTIN
     Indication: Neuralgia
     Dosage: TWO 300 MG, 1X/DAY
  4. GABAPENTIN [Concomitant]
     Active Substance: GABAPENTIN
     Dosage: 300 MG
  5. FLUTICASONE FUROATE\VILANTEROL TRIFENATATE [Concomitant]
     Active Substance: FLUTICASONE FUROATE\VILANTEROL TRIFENATATE
     Indication: Asthma
     Dosage: 225 UG, 1X/DAY
  6. MONTELUKAST [Concomitant]
     Active Substance: MONTELUKAST
     Indication: Gastrooesophageal reflux disease
     Dosage: 10 MG, 1X/DAY
  7. ALBUTEROL [Concomitant]
     Active Substance: ALBUTEROL
     Indication: Asthma
     Dosage: 90 UG, AS NEEDED
  8. CELEBREX [Concomitant]
     Active Substance: CELECOXIB
     Dosage: UNK
  9. FAMOTIDINE [Concomitant]
     Active Substance: FAMOTIDINE
     Dosage: UNK
  10. MOMETASONE FUROATE [Concomitant]
     Active Substance: MOMETASONE FUROATE
     Dosage: UNK

REACTIONS (3)
  - Device physical property issue [Recovered/Resolved]
  - Vulvovaginal injury [Recovered/Resolved]
  - Off label use [Unknown]

NARRATIVE: CASE EVENT DATE: 20250901
